FAERS Safety Report 7555022-9 (Version None)
Quarter: 2011Q2

REPORT INFORMATION
  Report Type: 
  Country: None (occurrence: None)
  Receive Date: 20110617
  Receipt Date: 20110614
  Transmission Date: 20111010
  Serious: Yes (Hospitalization, Other)
  Sender: FDA-Public Use
  Company Number: GB-PFIZER INC-2011130189

PATIENT
  Age: 66 Year
  Sex: Male

DRUGS (4)
  1. ATROPINE SULFATE [Suspect]
     Indication: CARDIAC ARREST
  2. ADRENALIN IN OIL INJ [Suspect]
     Indication: CARDIAC ARREST
  3. ATROPINE SULFATE [Suspect]
     Indication: PULSELESS ELECTRICAL ACTIVITY
     Dosage: 3 MG, UNK
     Route: 042
  4. ADRENALIN IN OIL INJ [Suspect]
     Indication: PULSELESS ELECTRICAL ACTIVITY
     Dosage: 1 MG, UNK
     Route: 042

REACTIONS (1)
  - PUPIL FIXED [None]
